FAERS Safety Report 6275654-8 (Version None)
Quarter: 2009Q3

REPORT INFORMATION
  Report Type: 
  Country: None (occurrence: None)
  Receive Date: 20090721
  Receipt Date: 20090707
  Transmission Date: 20100115
  Serious: Yes (Hospitalization, Other)
  Sender: FDA-Public Use
  Company Number: CA-GENENTECH-287029

PATIENT
  Sex: Female
  Weight: 70.3 kg

DRUGS (2)
  1. XOLAIR [Suspect]
     Indication: ASTHMA
     Dosage: 225 MG, UNK
     Route: 058
     Dates: start: 20060405
  2. XOLAIR [Suspect]
     Dosage: UNK

REACTIONS (7)
  - ASTHMA [None]
  - BRONCHITIS [None]
  - DEPRESSED MOOD [None]
  - LUNG DISORDER [None]
  - NERVOUSNESS [None]
  - PAINFUL RESPIRATION [None]
  - PRODUCTIVE COUGH [None]
